FAERS Safety Report 23176475 (Version 1)
Quarter: 2023Q4

REPORT INFORMATION
  Report Type: Spontaneous
  Country: US (occurrence: None)
  Receive Date: 20231109
  Receipt Date: 20231109
  Transmission Date: 20240110
  Serious: No
  Sender: FDA-Public Use
  Company Number: None

PATIENT
  Sex: Female

DRUGS (1)
  1. PROCRIT [Suspect]
     Active Substance: ERYTHROPOIETIN
     Indication: Immunology test abnormal
     Dosage: 20000 UNIT/ML INJECTION? ?INJECT 20,000 UNITS (1 ML) UNDER THE SKIN (SUBCUTANEOUS INJECTION) EVERY 2
     Dates: start: 20230517

REACTIONS (1)
  - Urinary tract infection [None]
